FAERS Safety Report 6179315-5 (Version None)
Quarter: 2009Q2

REPORT INFORMATION
  Report Type: 
  Country: None (occurrence: None)
  Receive Date: 20090505
  Receipt Date: 20090430
  Transmission Date: 20091009
  Serious: Yes (Hospitalization)
  Sender: FDA-Public Use
  Company Number: SG-BAYER-200919760GPV

PATIENT
  Age: 49 Year
  Sex: Male
  Weight: 56 kg

DRUGS (2)
  1. SORAFENIB [Suspect]
     Indication: NON-SMALL CELL LUNG CANCER
     Dosage: TOTAL DAILY DOSE: 1600 MG
     Route: 048
     Dates: start: 20080722, end: 20090423
  2. VINORELBINE [Suspect]
     Indication: NON-SMALL CELL LUNG CANCER

REACTIONS (3)
  - BLISTER [None]
  - SKIN DISORDER [None]
  - STEVENS-JOHNSON SYNDROME [None]
